FAERS Safety Report 4707966-0 (Version None)
Quarter: 2005Q3

REPORT INFORMATION
  Report Type: 
  Country: None (occurrence: None)
  Receive Date: 20050707
  Receipt Date: 20050627
  Transmission Date: 20060218
  Serious: Yes (Other)
  Sender: FDA-Public Use
  Company Number: US-JNJFOC-20050607174

PATIENT
  Age: 15 Year
  Sex: Female

DRUGS (9)
  1. REMICADE [Suspect]
     Dosage: FOURTH DOSE AFTER RE-STARTING POST-SURGERY
     Route: 042
  2. REMICADE [Suspect]
     Dosage: THIRD DOSE AFTER RESTARTING POST-SURGERY
     Route: 042
  3. REMICADE [Suspect]
     Dosage: SECOND DOSE AFTER RESTARTING POST-SURGERY
     Route: 042
  4. REMICADE [Suspect]
     Dosage: FIRST DOSE AFTER RESTARTING POST-SURGERY
     Route: 042
  5. REMICADE [Suspect]
     Dosage: SECOND DOSE. STOPPED FOR SURGERY
     Route: 042
  6. REMICADE [Suspect]
     Indication: CROHN'S DISEASE
     Dosage: FIRST DOSE. RECEIVES EVERY 7-8 WEEKS
     Route: 042
  7. TYLENOL [Concomitant]
     Indication: PROPHYLAXIS
  8. BENADRYL [Concomitant]
     Indication: PROPHYLAXIS
  9. HYDROCORTISONE [Concomitant]
     Indication: PROPHYLAXIS

REACTIONS (2)
  - INFUSION RELATED REACTION [None]
  - SURGERY [None]
